FAERS Safety Report 8173494-6 (Version None)
Quarter: 2012Q1

REPORT INFORMATION
  Report Type: 
  Country: None (occurrence: None)
  Receive Date: 20120224
  Receipt Date: 20120213
  Transmission Date: 20120608
  Serious: Yes (Other)
  Sender: FDA-Public Use
  Company Number: 2012P1005205

PATIENT
  Age: 83 Year
  Sex: Male

DRUGS (9)
  1. TAMSULOSIN HCL [Concomitant]
  2. ISONIAZID [Concomitant]
  3. RIFAMPICIN [Suspect]
     Indication: TUBERCULOSIS
  4. RIFAMPICIN [Suspect]
     Indication: BOVINE TUBERCULOSIS
  5. ATENOLOL [Concomitant]
  6. AMIODARONE HCL [Suspect]
     Indication: ATRIAL FIBRILLATION
     Dosage: 200 MG;QD
     Dates: start: 20030301
  7. NIFEDIPINE [Concomitant]
  8. SIMVASTATIN [Concomitant]
  9. REPAGLINIDE [Concomitant]

REACTIONS (5)
  - CORNEAL OPACITY [None]
  - DRUG INTERACTION [None]
  - DRUG LEVEL BELOW THERAPEUTIC [None]
  - PALPITATIONS [None]
  - HALO VISION [None]
